FAERS Safety Report 5233866-6 (Version None)
Quarter: 2007Q1

REPORT INFORMATION
  Report Type: 
  Country: None (occurrence: None)
  Receive Date: 20070206
  Receipt Date: 20070118
  Transmission Date: 20070707
  Serious: Yes (Hospitalization, Other)
  Sender: FDA-Public Use
  Company Number: 15571

PATIENT
  Age: 66 Year
  Sex: Male

DRUGS (15)
  1. METHOTREXATE [Suspect]
     Dosage: 7.5 MG DAILY
     Dates: end: 20031017
  2. HUMIRA [Suspect]
     Dosage: 40 MG FORTNIGHTLY SC
     Route: 058
     Dates: start: 20030701, end: 20031017
  3. CALCIUM [Concomitant]
  4. FOLIC ACID [Concomitant]
  5. FUROSEMIDE [Concomitant]
  6. HYDROCHLOROQUINE [Concomitant]
  7. LANOPRAZOLE [Concomitant]
  8. MAGNESIUM HYDROXIDE TAB [Concomitant]
  9. NAPROXEN [Concomitant]
  10. PREDNISOLONE [Concomitant]
  11. SENNA [Concomitant]
  12. SIMVASTATIN [Concomitant]
  13. SULFASALAZINE [Concomitant]
  14. TAMSULOSIN HCL [Concomitant]
  15. TEMAZEPAM [Concomitant]

REACTIONS (6)
  - ALVEOLITIS [None]
  - PLEURAL EFFUSION [None]
  - PULMONARY FIBROSIS [None]
  - PULMONARY OEDEMA [None]
  - RESPIRATORY TRACT INFECTION [None]
  - SUBCUTANEOUS EMPHYSEMA [None]
